FAERS Safety Report 7533122-7 (Version None)
Quarter: 2011Q2

REPORT INFORMATION
  Report Type: 
  Country: None (occurrence: None)
  Receive Date: 20110608
  Receipt Date: 20110603
  Transmission Date: 20111010
  Serious: Yes (Life-Threatening)
  Sender: FDA-Public Use
  Company Number: US-ABBOTT-11P-163-0730599-00

PATIENT
  Sex: Male
  Weight: 76 kg

DRUGS (6)
  1. ATAZANAVIR [Concomitant]
     Indication: HIV INFECTION
  2. EMTRIVA [Concomitant]
     Indication: HIV INFECTION
  3. TENOFOVIR DISOPROXIL FUMARATE [Concomitant]
     Indication: HIV INFECTION
  4. NORVIR [Suspect]
     Indication: HIV INFECTION
     Dosage: AT BEDTIME
  5. LOPRESSOR [Concomitant]
     Indication: PRODUCT USED FOR UNKNOWN INDICATION
  6. PRAVACHOL [Concomitant]
     Indication: BLOOD CHOLESTEROL INCREASED

REACTIONS (3)
  - CARDIAC ARREST [None]
  - MYOCARDIAL INFARCTION [None]
  - VENTRICULAR FIBRILLATION [None]
